FAERS Safety Report 5975979-7 (Version None)
Quarter: 2008Q4

REPORT INFORMATION
  Report Type: 
  Country: None (occurrence: None)
  Receive Date: 20081202
  Receipt Date: 20081121
  Transmission Date: 20090506
  Serious: Yes (Hospitalization)
  Sender: FDA-Public Use
  Company Number: PHHY2008CA29321

PATIENT

DRUGS (2)
  1. CLOZARIL [Suspect]
  2. HALDOL [Concomitant]

REACTIONS (3)
  - BLOOD CREATININE DECREASED [None]
  - BLOOD MAGNESIUM DECREASED [None]
  - MEDICATION ERROR [None]
